FAERS Safety Report 5645029-0 (Version None)
Quarter: 2008Q1

REPORT INFORMATION
  Report Type: 
  Country: None (occurrence: None)
  Receive Date: 20080229
  Receipt Date: 20080225
  Transmission Date: 20080703
  Serious: Yes (Disabling)
  Sender: FDA-Public Use
  Company Number: JP-SP-2008-00223

PATIENT
  Age: 80 Year
  Sex: Male

DRUGS (11)
  1. IMMUCYST [Suspect]
     Indication: CARCINOMA IN SITU OF BLADDER
     Route: 043
     Dates: start: 20060227, end: 20060524
  2. IMMUCYST [Suspect]
     Route: 043
     Dates: start: 20060227, end: 20060524
  3. TAMSULOSIN HCL [Concomitant]
     Dates: start: 20060227
  4. BICALUTAMIDE [Concomitant]
     Dates: start: 20060227
  5. MECOBALAMIN [Concomitant]
     Dates: start: 20060227
  6. SENNA LEAF_SENNA POD [Concomitant]
     Dates: start: 20060227
  7. INSULIN HUMAN (GENETICAL RECOMBINATION) [Concomitant]
     Dates: start: 20060227
  8. CEFCAPENE PIVOXIL HYDROCHLORIDE [Concomitant]
     Dates: start: 20060308, end: 20060310
  9. LEVOFLOXACIN [Concomitant]
     Dates: start: 20060315, end: 20060321
  10. SULFAMETHOXAZOLE AND TRIMETHOPRIM [Concomitant]
     Dates: start: 20060329, end: 20060516
  11. MINOCYCLINE HYDROCHLORIDE [Concomitant]
     Route: 048
     Dates: start: 20060517, end: 20060524

REACTIONS (3)
  - CYSTITIS [None]
  - DYSPNOEA EXERTIONAL [None]
  - EMPHYSEMA [None]
